FAERS Safety Report 8829103 (Version 3)
Quarter: 2013Q2

REPORT INFORMATION
  Report Type: Report from Study
  Country: US (occurrence: US)
  Receive Date: 20121008
  Receipt Date: 20130404
  Transmission Date: 20140414
  Serious: Yes (Death, Hospitalization)
  Sender: FDA-Public Use
  Company Number: US-ROCHE-1061121

PATIENT
  Age: 52 Year
  Sex: Female
  Weight: 97.61 kg

DRUGS (2)
  1. ZELBORAF [Suspect]
     Indication: METASTATIC MALIGNANT MELANOMA
     Route: 048
     Dates: start: 201201, end: 201208
  2. ZELBORAF [Suspect]
     Route: 048

REACTIONS (11)
  - Pyrexia [Recovered/Resolved]
  - Local swelling [Unknown]
  - Pneumonia [Recovered/Resolved]
  - Cough [Recovered/Resolved]
  - Chest pain [Recovered/Resolved]
  - Fatigue [Unknown]
  - Sunburn [Unknown]
  - Blister [Unknown]
  - Pyrexia [Not Recovered/Not Resolved]
  - Nausea [Not Recovered/Not Resolved]
  - Disease progression [Fatal]
